FAERS Safety Report 5168971-6 (Version None)
Quarter: 2006Q4

REPORT INFORMATION
  Report Type: 
  Country: None (occurrence: None)
  Receive Date: 20061211
  Receipt Date: 20061206
  Transmission Date: 20070319
  Serious: Yes (Hospitalization)
  Sender: FDA-Public Use
  Company Number: FR-BRISTOL-MYERS SQUIBB COMPANY-13604103

PATIENT
  Age: 82 Year
  Sex: Male

DRUGS (4)
  1. APROVEL [Suspect]
     Indication: HYPERTENSION
     Route: 048
  2. MEDIATOR [Concomitant]
     Indication: HYPERLIPIDAEMIA
  3. CARDENSIEL [Concomitant]
     Indication: HYPERTENSION
  4. ZANIDIP [Concomitant]
     Indication: HYPERTENSION

REACTIONS (2)
  - HYPOTENSION [None]
  - MALAISE [None]
